FAERS Safety Report 4422144-0 (Version None)
Quarter: 2004Q3

REPORT INFORMATION
  Report Type: 
  Country: None (occurrence: None)
  Receive Date: 20040804
  Receipt Date: 20040726
  Transmission Date: 20050211
  Serious: Yes (Other)
  Sender: FDA-Public Use
  Company Number: 2004225659US

PATIENT
  Sex: Female

DRUGS (5)
  1. PROVERA [Suspect]
  2. PREMARIN [Suspect]
  3. PREMPRO [Suspect]
  4. ESTRACE [Suspect]
  5. ESTROGENS [Suspect]

REACTIONS (2)
  - BREAST CANCER FEMALE [None]
  - LABORATORY TEST ABNORMAL [None]
